FAERS Safety Report 12491379 (Version 6)
Quarter: 2018Q2

REPORT INFORMATION
  Report Type: Spontaneous
  Country: US (occurrence: US)
  Receive Date: 20160623
  Receipt Date: 20180607
  Transmission Date: 20180711
  Serious: Yes (Other)
  Sender: FDA-Public Use
  Company Number: US-JNJFOC-20160611221

PATIENT
  Sex: Male
  Weight: 97.52 kg

DRUGS (3)
  1. KETOCONAZOLE. [Suspect]
     Active Substance: KETOCONAZOLE
     Indication: TINEA CRURIS
     Dosage: BETWEEN 2012 AND 2014
     Route: 061
     Dates: start: 2013, end: 2013
  2. KETOCONAZOLE. [Suspect]
     Active Substance: KETOCONAZOLE
     Indication: TINEA CRURIS
     Route: 061
     Dates: start: 20130615
  3. KETOCONAZOLE. [Suspect]
     Active Substance: KETOCONAZOLE
     Indication: TINEA CRURIS
     Dosage: AS NEEDED
     Route: 061

REACTIONS (5)
  - Haemophilus infection [Unknown]
  - Tinea cruris [Not Recovered/Not Resolved]
  - Dermal absorption impaired [Unknown]
  - Product use in unapproved indication [Unknown]
  - Off label use [Unknown]

NARRATIVE: CASE EVENT DATE: 2013
